FAERS Safety Report 23537052 (Version 10)
Quarter: 2025Q2

REPORT INFORMATION
  Report Type: Report from Study
  Country: CA (occurrence: CA)
  Receive Date: 20240219
  Receipt Date: 20250506
  Transmission Date: 20250716
  Serious: Yes (Other)
  Sender: AMGEN
  Company Number: CA-AMGEN-CANSL2023174943

PATIENT
  Age: 67 Year
  Sex: Male
  Weight: 94 kg

DRUGS (6)
  1. MVASI [Suspect]
     Active Substance: BEVACIZUMAB-AWWB
     Indication: Colorectal cancer metastatic
     Dosage: 480 MILLIGRAM, Q2WK
     Route: 042
     Dates: start: 20231023
  2. MVASI [Suspect]
     Active Substance: BEVACIZUMAB-AWWB
     Route: 042
  3. MVASI [Suspect]
     Active Substance: BEVACIZUMAB-AWWB
     Dosage: 475 MILLIGRAM, Q2WK
     Route: 042
  4. MVASI [Suspect]
     Active Substance: BEVACIZUMAB-AWWB
     Dosage: 475 MILLIGRAM, Q2WK
     Route: 042
     Dates: end: 20240708
  5. LONSURF [Concomitant]
     Active Substance: TIPIRACIL HYDROCHLORIDE\TRIFLURIDINE
     Route: 065
  6. HEPARIN [Concomitant]
     Active Substance: HEPARIN SODIUM
     Route: 065

REACTIONS (13)
  - Haemoglobin decreased [Unknown]
  - Pulmonary embolism [Unknown]
  - Transfusion [Unknown]
  - Dyspnoea [Unknown]
  - Diarrhoea [Unknown]
  - Weight decreased [Unknown]
  - Platelet count decreased [Unknown]
  - Blood test abnormal [Unknown]
  - Fall [Unknown]
  - Pain [Unknown]
  - Fatigue [Not Recovered/Not Resolved]
  - Therapy interrupted [Unknown]
  - Unevaluable event [Unknown]

NARRATIVE: CASE EVENT DATE: 20231201
